FAERS Safety Report 21436791 (Version 2)
Quarter: 2022Q4

REPORT INFORMATION
  Report Type: Spontaneous
  Country: US (occurrence: US)
  Receive Date: 20221010
  Receipt Date: 20221213
  Transmission Date: 20230112
  Serious: No
  Sender: FDA-Public Use
  Company Number: US-ALXN-A202212198

PATIENT
  Sex: Male

DRUGS (1)
  1. STRENSIQ [Suspect]
     Active Substance: ASFOTASE ALFA
     Indication: Hypophosphatasia
     Dosage: UNK
     Route: 065

REACTIONS (2)
  - Rhinorrhoea [Unknown]
  - Upper respiratory tract infection [Unknown]
